FAERS Safety Report 5846804-X (Version None)
Quarter: 2008Q3

REPORT INFORMATION
  Report Type: 
  Country: None (occurrence: None)
  Receive Date: 20080815
  Receipt Date: 20080812
  Transmission Date: 20090109
  Serious: Yes (Life-Threatening, Hospitalization)
  Sender: FDA-Public Use
  Company Number: FR-ASTRAZENECA-2008CG01211

PATIENT
  Age: 37 Year
  Sex: Female

DRUGS (6)
  1. DIPRIVAN [Suspect]
     Indication: INDUCTION OF ANAESTHESIA
     Route: 042
     Dates: start: 20080411, end: 20080411
  2. XYLOCAINE [Concomitant]
     Indication: LOCAL ANAESTHESIA
     Route: 001
     Dates: start: 20080411, end: 20080411
  3. AUGMENTIN '125' [Concomitant]
     Indication: ANTIBIOTIC PROPHYLAXIS
     Route: 042
     Dates: start: 20080411, end: 20080411
  4. HYPNOVEL [Concomitant]
     Route: 042
     Dates: start: 20080411, end: 20080411
  5. DROLEPTAN [Concomitant]
     Indication: GENERAL ANAESTHESIA
     Route: 042
     Dates: start: 20080411, end: 20080411
  6. SUFENTANIL CITRATE [Concomitant]
     Indication: GENERAL ANAESTHESIA
     Route: 042
     Dates: start: 20080411, end: 20080411

REACTIONS (1)
  - ANAPHYLACTIC SHOCK [None]
